FAERS Safety Report 9947890 (Version 1)
Quarter: 2014Q1

REPORT INFORMATION
  Report Type: Report from Study
  Country: US (occurrence: US)
  Receive Date: 20140303
  Receipt Date: 20140303
  Transmission Date: 20141002
  Serious: No
  Sender: FDA-Public Use
  Company Number: US-ABBVIE-13P-163-1058762-00

PATIENT
  Age: 63 Year
  Sex: Female
  Weight: 64.47 kg

DRUGS (3)
  1. HUMIRA [Suspect]
     Indication: RHEUMATOID ARTHRITIS
     Route: 058
     Dates: start: 201206, end: 201301
  2. HUMIRA [Suspect]
     Route: 058
     Dates: start: 201301
  3. ESTRADIOL [Concomitant]
     Indication: HORMONE REPLACEMENT THERAPY
     Dosage: PATCH
     Route: 062

REACTIONS (2)
  - Incorrect product storage [Unknown]
  - Arthritis [Not Recovered/Not Resolved]
